FAERS Safety Report 17150118 (Version 2)
Quarter: 2020Q1

REPORT INFORMATION
  Report Type: Spontaneous
  Country: DK (occurrence: DK)
  Receive Date: 20191213
  Receipt Date: 20200221
  Transmission Date: 20200409
  Serious: Yes (Other)
  Sender: FDA-Public Use
  Company Number: NVSC2019DK029816

PATIENT
  Age: 25 Year
  Sex: Female

DRUGS (5)
  1. ITRACONAZOLE. [Suspect]
     Active Substance: ITRACONAZOLE
     Indication: TRICHOPHYTOSIS
     Dosage: UNK
     Route: 062
  2. TERBINAFINE. [Suspect]
     Active Substance: TERBINAFINE
     Indication: TRICHOPHYTOSIS
     Dosage: UNK
     Route: 048
     Dates: start: 2018
  3. TERBINAFINE. [Suspect]
     Active Substance: TERBINAFINE
     Dosage: UNK 1 COURSE
     Route: 062
     Dates: start: 2018
  4. TERBINAFINE. [Suspect]
     Active Substance: TERBINAFINE
     Dosage: UNK 1 COURSE
     Route: 061
     Dates: start: 2018
  5. TERBINAFINE HYDROCHLORIDE. [Suspect]
     Active Substance: TERBINAFINE HYDROCHLORIDE
     Indication: TRICHOPHYTOSIS
     Dosage: UNK
     Route: 061
     Dates: start: 2018

REACTIONS (4)
  - Pathogen resistance [Unknown]
  - Treatment failure [Unknown]
  - Drug ineffective [Unknown]
  - Drug resistance [Unknown]
